FAERS Safety Report 8833263 (Version 2)
Quarter: 2012Q4

REPORT INFORMATION
  Report Type: 
  Country: DE (occurrence: DE)
  Receive Date: 20121010
  Receipt Date: 20121023
  Transmission Date: 20130627
  Serious: Yes (Hospitalization)
  Sender: FDA-Public Use
  Company Number: DE-MYLANLABS-2012S1020204

PATIENT
  Age: 40 Year
  Sex: Female
  Weight: 60 kg

DRUGS (3)
  1. MIRTAZAPINE [Suspect]
     Route: 048
  2. QUETIAPINE [Suspect]
     Route: 048
  3. DOXYLAMINE [Suspect]
     Route: 048

REACTIONS (6)
  - Overdose [Unknown]
  - Suicidal behaviour [Unknown]
  - Tachycardia [Unknown]
  - Somnolence [Unknown]
  - Gastrointestinal sounds abnormal [Unknown]
  - Thirst [Unknown]
